FAERS Safety Report 15625285 (Version 3)
Quarter: 2019Q1

REPORT INFORMATION
  Report Type: Spontaneous
  Country: US (occurrence: US)
  Receive Date: 20181116
  Receipt Date: 20190211
  Transmission Date: 20190417
  Serious: Yes (Death, Hospitalization, Other)
  Sender: FDA-Public Use
  Company Number: PHEH2018US047883

PATIENT
  Age: 72 Year
  Sex: Male
  Weight: 85.72 kg

DRUGS (2)
  1. PROMACTA [Suspect]
     Active Substance: ELTROMBOPAG OLAMINE
     Indication: LUNG CARCINOMA CELL TYPE UNSPECIFIED STAGE 0
     Dosage: 25 MG, QD
     Route: 048
     Dates: start: 20181012
  2. PROMACTA [Suspect]
     Active Substance: ELTROMBOPAG OLAMINE
     Dosage: 50 MG, QD
     Route: 048
     Dates: start: 201810

REACTIONS (8)
  - Malignant neoplasm progression [Fatal]
  - Dementia [Unknown]
  - Platelet count decreased [Unknown]
  - Cough [Unknown]
  - Pneumonia [Unknown]
  - Lung neoplasm malignant [Fatal]
  - Dyspnoea [Unknown]
  - Coronary artery disease [Unknown]

NARRATIVE: CASE EVENT DATE: 20181121
